FAERS Safety Report 9412449 (Version 1)
Quarter: 2013Q3

REPORT INFORMATION
  Report Type: Spontaneous
  Country: US (occurrence: US)
  Receive Date: 20130722
  Receipt Date: 20130722
  Transmission Date: 20140515
  Serious: Yes (Other)
  Sender: FDA-Public Use
  Company Number: US-PFIZER INC-2013213279

PATIENT
  Age: 59 Year
  Sex: Female
  Weight: 117.1 kg

DRUGS (2)
  1. LYRICA [Suspect]
     Indication: DIABETIC NEUROPATHY
     Dosage: 150 MG (TAKING 2 CAPSULES OF 75MG IN MORNING AND 2 CAPSULE OF 75MG IN THE EVENING) , 2X/DAY
     Route: 048
     Dates: start: 2010
  2. HYDROCODONE [Concomitant]
     Dosage: UNK

REACTIONS (1)
  - Back disorder [Unknown]
